FAERS Safety Report 9685680 (Version 2)
Quarter: 2013Q4

REPORT INFORMATION
  Report Type: Spontaneous
  Country: US (occurrence: US)
  Receive Date: 20131113
  Receipt Date: 20131220
  Transmission Date: 20140711
  Serious: No
  Sender: FDA-Public Use
  Company Number: US-PFIZER INC-2013318276

PATIENT
  Sex: Female

DRUGS (1)
  1. TESSALON [Suspect]
     Dosage: 100 MG, UNK

REACTIONS (3)
  - Drug administration error [Unknown]
  - Chronic obstructive pulmonary disease [Unknown]
  - Hypoacusis [Unknown]
